FAERS Safety Report 15601807 (Version 1)
Quarter: 2018Q4

REPORT INFORMATION
  Report Type: Spontaneous
  Country: US (occurrence: US)
  Receive Date: 20181109
  Receipt Date: 20181109
  Transmission Date: 20190205
  Serious: No
  Sender: FDA-Public Use
  Company Number: US-009507513-1811USA002658

PATIENT
  Age: 75 Year
  Sex: Female

DRUGS (3)
  1. LIVALO [Concomitant]
     Active Substance: PITAVASTATIN CALCIUM
  2. ANALGESIC (UNSPECIFIED) [Concomitant]
     Active Substance: UNSPECIFIED INGREDIENT
     Indication: BACK DISORDER
  3. JANUVIA [Suspect]
     Active Substance: SITAGLIPTIN PHOSPHATE
     Indication: TYPE 2 DIABETES MELLITUS
     Dosage: 1 TABLET (50 MG) A DAY
     Route: 048
     Dates: start: 201810

REACTIONS (2)
  - Alopecia [Not Recovered/Not Resolved]
  - Headache [Recovered/Resolved]

NARRATIVE: CASE EVENT DATE: 2018
